FAERS Safety Report 23500040 (Version 1)
Quarter: 2024Q1

REPORT INFORMATION
  Report Type: Spontaneous
  Country: GB (occurrence: GB)
  Receive Date: 20240208
  Receipt Date: 20240208
  Transmission Date: 20240410
  Serious: No
  Sender: FDA-Public Use
  Company Number: None

PATIENT
  Age: 79 Year
  Sex: Female
  Weight: 52 kg

DRUGS (3)
  1. CEPHALEXIN [Suspect]
     Active Substance: CEPHALEXIN
     Indication: Urinary tract infection
     Dosage: 500 MILLIGRAM, BID (TWICE A DAY) (TABLET)
     Route: 065
     Dates: start: 20231209, end: 20231213
  2. CEPHALEXIN [Suspect]
     Active Substance: CEPHALEXIN
     Indication: Urinary tract infection
     Dosage: 500 MILLIGRAM, BID (TWICE A DAY) (TABLET) (SORRY I HAVE THROWN THE PACKET AWAY)
     Route: 065
     Dates: start: 20231209
  3. CANDESARTAN [Concomitant]
     Active Substance: CANDESARTAN
     Indication: Hypotension
     Dosage: UNK
     Route: 065

REACTIONS (1)
  - Disorientation [Recovered/Resolved]

NARRATIVE: CASE EVENT DATE: 20231209
